FAERS Safety Report 6370916-8 (Version None)
Quarter: 2009Q3

REPORT INFORMATION
  Report Type: 
  Country: None (occurrence: None)
  Receive Date: 20090923
  Receipt Date: 20070522
  Transmission Date: 20100115
  Serious: No
  Sender: FDA-Public Use
  Company Number: US-ASTRAZENECA-2006UW22892

PATIENT
  Age: 47 Year
  Sex: Male
  Weight: 130.2 kg

DRUGS (8)
  1. SEROQUEL [Suspect]
     Indication: BIPOLAR DISORDER
     Dosage: 25-400 MG PO
     Dates: start: 20040801
  2. SEROQUEL [Suspect]
     Indication: POST-TRAUMATIC STRESS DISORDER
     Dosage: 25-400 MG PO
     Dates: start: 20040801
  3. SEROQUEL [Suspect]
     Dosage: 200-800 MG
     Route: 048
     Dates: start: 20050825
  4. SEROQUEL [Suspect]
     Dosage: 200-800 MG
     Route: 048
     Dates: start: 20050825
  5. TRIZADONE [Concomitant]
  6. MUCINEX [Concomitant]
     Route: 048
     Dates: start: 20050912
  7. NAPROXEN [Concomitant]
     Route: 048
     Dates: start: 20050912
  8. TRAMADOL HCL [Concomitant]
     Route: 048
     Dates: start: 20051001

REACTIONS (5)
  - DIABETES MELLITUS [None]
  - HYDRONEPHROSIS [None]
  - NEPHROLITHIASIS [None]
  - TYPE 1 DIABETES MELLITUS [None]
  - TYPE 2 DIABETES MELLITUS [None]
